FAERS Safety Report 16856215 (Version 11)
Quarter: 2022Q1

REPORT INFORMATION
  Report Type: Report from Study
  Country: GB (occurrence: GB)
  Receive Date: 20190926
  Receipt Date: 20220331
  Transmission Date: 20220424
  Serious: Yes (Death, Congenital Anomaly, Other)
  Sender: FDA-Public Use
  Company Number: None

PATIENT
  Age: 4 Day
  Sex: Male

DRUGS (23)
  1. ABACAVIR SULFATE\LAMIVUDINE\ZIDOVUDINE [Suspect]
     Active Substance: ABACAVIR SULFATE\LAMIVUDINE\ZIDOVUDINE
     Indication: HIV infection
     Dosage: 1 DOSAGE FORMS DAILY; 1 DF, QD (DOSE: 1 TABLET/CAPSULE; STRENGTH: 600 MG/ 300 MG), THERAPY START AND
     Route: 064
  2. ABACAVIR SULFATE\LAMIVUDINE\ZIDOVUDINE [Suspect]
     Active Substance: ABACAVIR SULFATE\LAMIVUDINE\ZIDOVUDINE
     Indication: Foetal exposure during pregnancy
  3. ASPIRIN [Suspect]
     Active Substance: ASPIRIN
     Indication: Foetal exposure during pregnancy
     Dosage: UNK, THERAPY START AND END DATE: ASKU,      /00002701/
     Route: 064
  4. ASPIRIN [Suspect]
     Active Substance: ASPIRIN
     Indication: Hypertension
  5. CHOLECALCIFEROL [Suspect]
     Active Substance: CHOLECALCIFEROL
     Indication: Foetal exposure during pregnancy
     Dosage: UNK, THERAPY START AND END DATE: ASKU
     Route: 064
  6. LAMIVUDINE [Suspect]
     Active Substance: LAMIVUDINE
     Indication: HIV infection
     Dosage: 1 DOSAGE FORMS DAILY; (DOSE: 1 TABLET/CAPSULE; STRENGTH: 600 MG/ 300 MG)
     Route: 064
  7. LAMIVUDINE [Suspect]
     Active Substance: LAMIVUDINE
     Dosage: 1 DOSAGE FORMS DAILY; THERAPY START AND END DATE: ASKU, 1 DOSAGE FORM, QD
     Route: 064
  8. LAMIVUDINE [Suspect]
     Active Substance: LAMIVUDINE
     Dosage: 1 DOSAGE FORMS DAILY;
     Route: 064
  9. NEVIRAPINE [Suspect]
     Active Substance: NEVIRAPINE
     Indication: HIV infection
     Dosage: 400 MILLIGRAM DAILY;
     Route: 064
  10. NEVIRAPINE [Suspect]
     Active Substance: NEVIRAPINE
     Indication: Foetal exposure during pregnancy
  11. CHOLECALCIFEROL [Suspect]
     Active Substance: CHOLECALCIFEROL
     Indication: Product used for unknown indication
     Dosage: UNK
     Route: 064
  12. NIFEDIPINE [Suspect]
     Active Substance: NIFEDIPINE
     Indication: Hypertension
     Dosage: UNK, THERAPY START AND END DATE: ASKU
     Route: 064
  13. LABETALOL [Suspect]
     Active Substance: LABETALOL\LABETALOL HYDROCHLORIDE
     Indication: Product used for unknown indication
     Dosage: UNK, THERAPY START AND END DATE: ASKU
     Route: 064
  14. LABETALOL [Suspect]
     Active Substance: LABETALOL\LABETALOL HYDROCHLORIDE
     Indication: Hypertension
     Dosage: UNK(TABLET), IN 1ST TRIMESTER
     Route: 064
  15. LABETALOL [Suspect]
     Active Substance: LABETALOL\LABETALOL HYDROCHLORIDE
     Indication: Foetal exposure during pregnancy
  16. ABACAVIR [Suspect]
     Active Substance: ABACAVIR
     Indication: HIV infection
     Dosage: MATERNAL DOSE: 400 QD
     Route: 064
  17. ABACAVIR [Suspect]
     Active Substance: ABACAVIR
     Dosage: 400 DOSAGE FORMS DAILY;
     Route: 064
  18. ABACAVIR [Suspect]
     Active Substance: ABACAVIR
     Dosage: 1 DOSAGE FORMS DAILY;  (DOSE: 1 TABLET/CAPSULE; STRENGTH: 600 MG/ 300 MG)
     Route: 064
  19. VIRAMUNE [Suspect]
     Active Substance: NEVIRAPINE
     Indication: HIV infection
     Dosage: 400 MILLIGRAM DAILY;
     Route: 064
  20. ERGOCALCIFEROL [Suspect]
     Active Substance: ERGOCALCIFEROL
     Indication: Product used for unknown indication
     Dosage: UNK, THERAPY START AND END DATE: ASKU
     Route: 064
  21. ERGOCALCIFEROL [Concomitant]
     Active Substance: ERGOCALCIFEROL
     Indication: Product used for unknown indication
     Route: 064
  22. VITAMIN D2 [Concomitant]
     Active Substance: ERGOCALCIFEROL
     Indication: Product used for unknown indication
     Dosage: UNK, THERAPY START AND END DATE: ASKU
     Route: 064
  23. ASPIRIN [Concomitant]
     Active Substance: ASPIRIN
     Indication: Product used for unknown indication
     Dosage: UNK

REACTIONS (8)
  - Death [Fatal]
  - Polydactyly [Fatal]
  - Foetal exposure during pregnancy [Fatal]
  - Trisomy 21 [Fatal]
  - Atrioventricular septal defect [Fatal]
  - Pulmonary hypertension [Fatal]
  - Gene mutation [Fatal]
  - Foetal exposure during pregnancy [Recovered/Resolved]

NARRATIVE: CASE EVENT DATE: 20181116
